FAERS Safety Report 23189579 (Version 1)
Quarter: 2023Q4

REPORT INFORMATION
  Report Type: Spontaneous
  Country: BE (occurrence: BE)
  Receive Date: 20231116
  Receipt Date: 20231116
  Transmission Date: 20240109
  Serious: Yes (Hospitalization)
  Sender: FDA-Public Use
  Company Number: BE-NOVITIUMPHARMA-2023BENVP01978

PATIENT
  Age: 83 Year
  Sex: Female

DRUGS (4)
  1. BISOPROLOL FUMARATE [Suspect]
     Active Substance: BISOPROLOL FUMARATE
     Indication: Atrial fibrillation
  2. FLECAINIDE [Concomitant]
     Active Substance: FLECAINIDE
     Indication: Atrial fibrillation
     Route: 042
  3. EDOXABAN [Concomitant]
     Active Substance: EDOXABAN
     Indication: Atrial fibrillation
  4. PREDNISOLONE [Concomitant]
     Active Substance: PREDNISOLONE
     Indication: Atrial fibrillation

REACTIONS (1)
  - Atrial conduction time prolongation [Recovering/Resolving]
